FAERS Safety Report 6377948-4 (Version None)
Quarter: 2009Q3

REPORT INFORMATION
  Report Type: 
  Country: None (occurrence: None)
  Receive Date: 20090925
  Receipt Date: 20090921
  Transmission Date: 20100115
  Serious: Yes (Life-Threatening, Hospitalization)
  Sender: FDA-Public Use
  Company Number: PHHY2009US40707

PATIENT

DRUGS (8)
  1. CLOZAPINE [Suspect]
     Indication: SCHIZOAFFECTIVE DISORDER
     Dosage: 200MG TWICE DAILY AND 300MG AT BEDTIME
  2. CLOZAPINE [Suspect]
     Dosage: 75 MG PER DAY
  3. TOPIRAMATE [Concomitant]
     Dosage: 100 MG TWICE DAILY AND 50 MG AT BEDTIME
  4. ALPRAZOLAM [Concomitant]
     Dosage: 1MG IN THE MORNING, 0.5MG IN THE EVENING, AND 0.5MG AT BEDTIME
  5. VENLAFAXINE [Concomitant]
     Dosage: 225MG DAILY
  6. OXYBUTYNIN CHLORIDE [Concomitant]
     Dosage: 5 MG, TID
  7. AMLODIPINE [Concomitant]
     Dosage: 5MG DAILY
  8. ZOLPIDEM [Concomitant]
     Dosage: 20 MG AT BEDTIME

REACTIONS (20)
  - ABDOMINAL DISTENSION [None]
  - ABDOMINAL PAIN [None]
  - ASPIRATION [None]
  - COLONIC ATONY [None]
  - CONSTIPATION [None]
  - FAECAL INCONTINENCE [None]
  - FAECAL VOLUME DECREASED [None]
  - HALLUCINATION [None]
  - HEPATOMEGALY [None]
  - HYPERTENSION [None]
  - INTESTINAL DILATATION [None]
  - INTESTINAL INFARCTION [None]
  - MUCOSAL NECROSIS [None]
  - NAUSEA [None]
  - PARANOIA [None]
  - RESPIRATORY ARREST [None]
  - SEPTIC SHOCK [None]
  - TENDERNESS [None]
  - URINARY INCONTINENCE [None]
  - VOMITING [None]
